FAERS Safety Report 9515674 (Version 1)
Quarter: 2013Q1

REPORT INFORMATION
  Report Type: Spontaneous
  Country: US (occurrence: None)
  Receive Date: 20130305
  Receipt Date: 20130305
  Transmission Date: 20140127
  Serious: Yes (Other)
  Sender: FDA-Public Use
  Company Number: 163-21880-12050804

PATIENT
  Age: 75 Year
  Sex: Female

DRUGS (2)
  1. REVLIMID [Suspect]
     Indication: PLASMA CELL MYELOMA
     Route: 048
     Dates: start: 20120303
  2. DEXAMETHASONE (DEXAMETHASONE) [Concomitant]

REACTIONS (5)
  - Anaemia [None]
  - Platelet count decreased [None]
  - Alopecia [None]
  - Epistaxis [None]
  - Rash [None]
